FAERS Safety Report 21229258 (Version 6)
Quarter: 2024Q1

REPORT INFORMATION
  Report Type: Report from Study
  Country: US (occurrence: US)
  Receive Date: 20220818
  Receipt Date: 20240307
  Transmission Date: 20240410
  Serious: Yes (Other)
  Sender: FDA-Public Use
  Company Number: US-ABBVIE-22K-163-4506425-00

PATIENT
  Sex: Female

DRUGS (2)
  1. VENCLEXTA [Suspect]
     Active Substance: VENETOCLAX
     Indication: B-cell small lymphocytic lymphoma
     Dosage: 4 TABLETS EVERYDAY
     Route: 048
  2. VENCLEXTA [Suspect]
     Active Substance: VENETOCLAX
     Indication: B-cell small lymphocytic lymphoma
     Dosage: HALVED DOSES
     Route: 048

REACTIONS (11)
  - Craniocerebral injury [Unknown]
  - Pain in extremity [Not Recovered/Not Resolved]
  - Cognitive disorder [Unknown]
  - Peripheral swelling [Not Recovered/Not Resolved]
  - Cardiac disorder [Unknown]
  - Memory impairment [Unknown]
  - Fall [Unknown]
  - Intentional product misuse [Unknown]
  - Craniofacial fracture [Unknown]
  - Arterial injury [Unknown]
  - Wound haemorrhage [Unknown]

NARRATIVE: CASE EVENT DATE: 20220101
